FAERS Safety Report 4550374-6 (Version None)
Quarter: 2005Q1

REPORT INFORMATION
  Report Type: 
  Country: None (occurrence: None)
  Receive Date: 20050111
  Receipt Date: 20050111
  Transmission Date: 20050727
  Serious: Yes (Life-Threatening)
  Sender: FDA-Public Use
  Company Number: None

PATIENT
  Age: 58 Year
  Sex: Female
  Weight: 75.2971 kg

DRUGS (3)
  1. PROZAC [Suspect]
     Indication: ANXIETY
     Dosage: 20 MG (?) ORAL
     Route: 048
     Dates: start: 20040930, end: 20041015
  2. PROZAC [Suspect]
     Indication: DEPRESSION
     Dosage: 20 MG (?) ORAL
     Route: 048
     Dates: start: 20040930, end: 20041015
  3. VITAMIN [Concomitant]

REACTIONS (3)
  - FEAR [None]
  - SELF-INJURIOUS IDEATION [None]
  - SUICIDAL IDEATION [None]
